FAERS Safety Report 21759281 (Version 2)
Quarter: 2023Q1

REPORT INFORMATION
  Report Type: Spontaneous
  Country: US (occurrence: US)
  Receive Date: 20221221
  Receipt Date: 20230215
  Transmission Date: 20230418
  Serious: No
  Sender: FDA-Public Use
  Company Number: US-BIOGEN-2022BI01176677

PATIENT
  Sex: Female

DRUGS (1)
  1. TECFIDERA [Suspect]
     Active Substance: DIMETHYL FUMARATE
     Indication: Multiple sclerosis
     Route: 050

REACTIONS (6)
  - Eructation [Unknown]
  - Taste disorder [Unknown]
  - Mood swings [Unknown]
  - Hypophagia [Recovered/Resolved]
  - Dysgeusia [Recovered/Resolved]
  - Vomiting [Recovered/Resolved]
